FAERS Safety Report 6707473-X (Version None)
Quarter: 2010Q2

REPORT INFORMATION
  Report Type: 
  Country: None (occurrence: None)
  Receive Date: 20100503
  Receipt Date: 20090922
  Transmission Date: 20101027
  Serious: Yes (Other)
  Sender: FDA-Public Use
  Company Number: US-ASTRAZENECA-2009SE14514

PATIENT
  Age: 65 Year
  Sex: Female

DRUGS (13)
  1. NEXIUM [Suspect]
     Route: 048
  2. LYRICA [Concomitant]
  3. CYMBALTA [Concomitant]
  4. PROPRANOLOL [Concomitant]
  5. XANAX [Concomitant]
  6. DARVOCET-N 100 [Concomitant]
  7. PREMARIN [Concomitant]
  8. ZYRTEC [Concomitant]
  9. CREON [Concomitant]
  10. PROTONIX [Concomitant]
  11. DIOVAN HCT [Concomitant]
  12. CELEBREX [Concomitant]
  13. NEURONTIN [Concomitant]

REACTIONS (2)
  - BACK PAIN [None]
  - CHEST PAIN [None]
